FAERS Safety Report 24809648 (Version 2)
Quarter: 2025Q1

REPORT INFORMATION
  Report Type: Spontaneous
  Country: US (occurrence: US)
  Receive Date: 20250106
  Receipt Date: 20250109
  Transmission Date: 20250409
  Serious: No
  Sender: Haleon PLC
  Company Number: US-HALEON-2220425

PATIENT
  Sex: Female

DRUGS (4)
  1. SENSODYNE PRONAMEL MULTI ACTION [Suspect]
     Active Substance: POTASSIUM NITRATE\SODIUM FLUORIDE
     Indication: Hyperaesthesia teeth
  2. SENSODYNE [Suspect]
     Active Substance: POTASSIUM NITRATE\SODIUM FLUORIDE
     Indication: Product used for unknown indication
  3. SENSODYNE PRONAMEL FRESH BREATH [Suspect]
     Active Substance: POTASSIUM NITRATE\SODIUM FLUORIDE
     Indication: Hyperaesthesia teeth
  4. SENSODYNE PRONAMEL [Suspect]
     Active Substance: POTASSIUM NITRATE\SODIUM FLUORIDE
     Indication: Product used for unknown indication

REACTIONS (9)
  - Dysphagia [Recovered/Resolved]
  - Oropharyngeal discomfort [Recovered/Resolved]
  - Lip dry [Recovered/Resolved]
  - Oral mucosal exfoliation [Recovered/Resolved]
  - Lip swelling [Recovered/Resolved]
  - Rhinorrhoea [Recovered/Resolved]
  - Chapped lips [Recovered/Resolved]
  - Hypersensitivity [Recovered/Resolved]
  - Cough [Recovered/Resolved]
